FAERS Safety Report 6465744-9 (Version None)
Quarter: 2009Q4

REPORT INFORMATION
  Report Type: 
  Country: None (occurrence: None)
  Receive Date: 20091201
  Receipt Date: 20091109
  Transmission Date: 20100525
  Serious: Yes (Other)
  Sender: FDA-Public Use
  Company Number: FI-GENENTECH-292445

PATIENT
  Age: 25 Year
  Sex: Female

DRUGS (2)
  1. XOLAIR [Suspect]
     Indication: ASTHMA
     Dosage: 150 MG, 1/MONTH
     Route: 058
     Dates: start: 20070727, end: 20071119
  2. XOLAIR [Suspect]
     Indication: RHINITIS ALLERGIC

REACTIONS (7)
  - ASTHMA [None]
  - CONJUNCTIVITIS [None]
  - COUGH [None]
  - EYELID OEDEMA [None]
  - FLUSHING [None]
  - STRIDOR [None]
  - TYPE I HYPERSENSITIVITY [None]
